FAERS Safety Report 7528938-7 (Version None)
Quarter: 2011Q2

REPORT INFORMATION
  Report Type: 
  Country: None (occurrence: None)
  Receive Date: 20110607
  Receipt Date: 20110524
  Transmission Date: 20111010
  Serious: Yes (Other)
  Sender: FDA-Public Use
  Company Number: PHHY2011US45504

PATIENT

DRUGS (1)
  1. CLOZARIL [Suspect]

REACTIONS (3)
  - RHABDOMYOLYSIS [None]
  - MUSCLE NECROSIS [None]
  - MYOSITIS [None]
